FAERS Safety Report 4583382-X (Version None)
Quarter: 2005Q1

REPORT INFORMATION
  Report Type: 
  Country: None (occurrence: None)
  Receive Date: 20050125
  Receipt Date: 20041119
  Transmission Date: 20050727
  Serious: No
  Sender: FDA-Public Use
  Company Number: USA041080436

PATIENT
  Age: 52 Year
  Sex: Female
  Weight: 41 kg

DRUGS (4)
  1. FORTEO [Suspect]
     Indication: OSTEOPOROSIS
     Dosage: 20 UG/1 DAY
     Dates: start: 20041002
  2. CLIMARA [Concomitant]
  3. VITAMIN D [Concomitant]
  4. CALCIUM GLUCONATE [Concomitant]

REACTIONS (17)
  - ARTHRALGIA [None]
  - BLOOD 1,25-DIHYDROXYCHOLECALCIFEROL INCREASED [None]
  - BLOOD CALCIUM INCREASED [None]
  - BONE DISORDER [None]
  - BONE PAIN [None]
  - DIFFICULTY IN WALKING [None]
  - DYSPNOEA [None]
  - EMOTIONAL DISTRESS [None]
  - FEELING ABNORMAL [None]
  - HEARING IMPAIRED [None]
  - MYALGIA [None]
  - NAUSEA [None]
  - NERVOUSNESS [None]
  - PAIN [None]
  - PALPITATIONS [None]
  - TEARFULNESS [None]
  - WEIGHT INCREASED [None]
